FAERS Safety Report 17428677 (Version 3)
Quarter: 2021Q1

REPORT INFORMATION
  Report Type: Other
  Country: BG (occurrence: BG)
  Receive Date: 20200218
  Receipt Date: 20210217
  Transmission Date: 20210419
  Serious: Yes (Death)
  Sender: FDA-Public Use
  Company Number: BG-ROCHE-2544134

PATIENT
  Age: 58 Year
  Sex: Female
  Weight: 67 kg

DRUGS (11)
  1. PERTUZUMAB. [Suspect]
     Active Substance: PERTUZUMAB
     Indication: BREAST CANCER
     Dosage: MOST RECENT DOSE OF PERTUZUMAB PRIOR TO THE EVENT: 21/NOV/2017
     Route: 042
     Dates: start: 20170330
  2. CAPECITABINE. [Suspect]
     Active Substance: CAPECITABINE
     Indication: BREAST CANCER
     Dosage: MOST RECENT DOSE PRIOR TO THE EVENT: 22/FEB/2019
     Route: 048
     Dates: start: 20190104
  3. TRASTUZUMAB. [Suspect]
     Active Substance: TRASTUZUMAB
     Indication: BREAST CANCER
     Dosage: MOST RECENT DOSE OF TRASTUZUMAB PRIOR TO THE EVENT: 21/NOV/2017
     Route: 041
     Dates: start: 20170330
  4. MANNITOL. [Concomitant]
     Active Substance: MANNITOL
     Indication: METASTASES TO CENTRAL NERVOUS SYSTEM
     Dosage: ONGOING = NOT CHECKED
     Dates: start: 20190404, end: 20190410
  5. CALCIUM GLUCONATE. [Concomitant]
     Active Substance: CALCIUM GLUCONATE
     Indication: METASTASES TO CENTRAL NERVOUS SYSTEM
     Dosage: ONGOING = NOT CHECKED
     Dates: start: 20190404, end: 20190410
  6. HUMAN ALBUMIN 20% BEHRING [Concomitant]
     Indication: METASTASES TO CENTRAL NERVOUS SYSTEM
     Dates: start: 20190404, end: 20190410
  7. LAPATINIB [Suspect]
     Active Substance: LAPATINIB
     Indication: BREAST CANCER
     Dosage: MOST RECENT WAS ADMINISTERED ON 04/APR/2019.
     Route: 048
     Dates: start: 20190114
  8. RINGERS SOLUTION [Concomitant]
     Active Substance: CALCIUM CHLORIDE\POTASSIUM CHLORIDE\SODIUM CHLORIDE
     Indication: METASTASES TO CENTRAL NERVOUS SYSTEM
     Dosage: ONGOING = NOT CHECKED
     Dates: start: 20190404, end: 20190410
  9. DEXAMETHASONE PHOSPHATE [Concomitant]
     Active Substance: DEXAMETHASONE PHOSPHATE
     Indication: METASTASES TO CENTRAL NERVOUS SYSTEM
     Dosage: ONGOING = NOT CHECKED
     Dates: start: 20190404, end: 20190410
  10. DOCETAXEL. [Suspect]
     Active Substance: DOCETAXEL
     Indication: BREAST CANCER
     Dosage: MOST RECENT DOSE OF DOCETAXEL PRIOR TO THE EVENT: 31/OCT/2017.
     Route: 042
     Dates: start: 20170330
  11. VITAMIN B COMPLEX [Concomitant]
     Active Substance: CYANOCOBALAMIN\DEXPANTHENOL\NIACINAMIDE\PYRIDOXINE HYDROCHLORIDE\RIBOFLAVIN 5^-PHOSPHATE SODIUM\THIAMINE HYDROCHLORIDE\VITAMIN B COMPLEX
     Dosage: ONGOING = NOT CHECKED
     Dates: start: 20190404, end: 20190410

REACTIONS (1)
  - Metastases to central nervous system [Fatal]

NARRATIVE: CASE EVENT DATE: 20190404
